FAERS Safety Report 10705734 (Version 3)
Quarter: 2022Q3

REPORT INFORMATION
  Report Type: Spontaneous
  Country: US (occurrence: US)
  Receive Date: 20150112
  Receipt Date: 20220821
  Transmission Date: 20221026
  Serious: Yes (Hospitalization, Other)
  Sender: FDA-Public Use
  Company Number: US-GLAXOSMITHKLINE-US2014GSK044664

PATIENT
  Age: 71 Year
  Sex: Female

DRUGS (3)
  1. ADVAIR DISKUS [Suspect]
     Active Substance: FLUTICASONE PROPIONATE\SALMETEROL XINAFOATE
     Indication: Product used for unknown indication
  2. OXYGEN [Concomitant]
     Active Substance: OXYGEN
     Dosage: UNK, CO
  3. DEVICE [Concomitant]
     Active Substance: DEVICE

REACTIONS (3)
  - Hospitalisation [Unknown]
  - Emergency care examination [Unknown]
  - Fracture [Unknown]

NARRATIVE: CASE EVENT DATE: 20140101
